FAERS Safety Report 5811677-8 (Version None)
Quarter: 2008Q3

REPORT INFORMATION
  Report Type: 
  Country: None (occurrence: None)
  Receive Date: 20080716
  Receipt Date: 20080715
  Transmission Date: 20090109
  Serious: Yes (Hospitalization)
  Sender: FDA-Public Use
  Company Number: A0737667A

PATIENT
  Age: 51 Year
  Sex: Female

DRUGS (2)
  1. ALLI [Suspect]
     Dates: start: 20080601
  2. NO CONCURRENT MEDICATION [Concomitant]

REACTIONS (3)
  - CHOLELITHIASIS [None]
  - DISCOMFORT [None]
  - PAIN [None]
